FAERS Safety Report 4537821-0 (Version None)
Quarter: 2004Q4

REPORT INFORMATION
  Report Type: 
  Country: None (occurrence: None)
  Receive Date: 20041224
  Receipt Date: 20041117
  Transmission Date: 20050328
  Serious: Yes (Hospitalization)
  Sender: FDA-Public Use
  Company Number: DE-MERCK-0411DEU00374

PATIENT
  Age: 76 Year
  Sex: Female
  Weight: 60 kg

DRUGS (4)
  1. VYTORIN [Suspect]
     Indication: HYPERLIPIDAEMIA
     Route: 048
     Dates: start: 20040913, end: 20041022
  2. METOPROLOL [Concomitant]
     Indication: HYPERTENSION
     Route: 048
     Dates: start: 20020313
  3. FELODIPINE [Concomitant]
     Indication: HYPERTENSION
     Route: 001
     Dates: start: 20020711, end: 20041022
  4. DICLOFENAC RESINATE [Concomitant]
     Indication: SPINAL COLUMN STENOSIS
     Route: 048
     Dates: start: 20041001, end: 20041022

REACTIONS (2)
  - CHOLANGITIS [None]
  - HEPATITIS [None]
